FAERS Safety Report 18383279 (Version 2)
Quarter: 2020Q4

REPORT INFORMATION
  Report Type: Spontaneous
  Country: AR (occurrence: AR)
  Receive Date: 20201014
  Receipt Date: 20201201
  Transmission Date: 20210114
  Serious: Yes (Other)
  Sender: FDA-Public Use
  Company Number: AR-MYLANLABS-2020M1086652

PATIENT
  Age: 51 Year
  Sex: Male

DRUGS (5)
  1. TRIFLUOPERAZINE [Concomitant]
     Active Substance: TRIFLUOPERAZINE HYDROCHLORIDE
     Dosage: 10 MILLIGRAM
  2. CLONAZEPAM. [Concomitant]
     Active Substance: CLONAZEPAM
     Dosage: 2 MILLIGRAM
  3. LAPENAX [Suspect]
     Active Substance: CLOZAPINE
     Indication: PRODUCT USED FOR UNKNOWN INDICATION
     Dosage: 300 MILLIGRAM, QD
     Dates: start: 201910
  4. BIPERIDEN [Concomitant]
     Active Substance: BIPERIDEN
     Dosage: 2 MILLIGRAM
  5. MAGNESIUM VALPROATE [Concomitant]
     Active Substance: VALPROATE MAGNESIUM
     Dosage: 800 MILLIGRAM

REACTIONS (3)
  - Haemoglobin increased [Not Recovered/Not Resolved]
  - Thrombocytopenia [Recovering/Resolving]
  - Asymptomatic COVID-19 [Unknown]

NARRATIVE: CASE EVENT DATE: 20200715
